FAERS Safety Report 8815873 (Version 12)
Quarter: 2018Q4

REPORT INFORMATION
  Report Type: Spontaneous
  Country: CA (occurrence: CA)
  Receive Date: 20120928
  Receipt Date: 20181120
  Transmission Date: 20190205
  Serious: Yes (Hospitalization, Other)
  Sender: FDA-Public Use
  Company Number: CA-ROCHE-1138840

PATIENT
  Age: 25 Year
  Sex: Male

DRUGS (5)
  1. TOBI [Suspect]
     Active Substance: TOBRAMYCIN
     Indication: CYSTIC FIBROSIS
     Dosage: BID
     Route: 065
  2. XOLAIR [Suspect]
     Active Substance: OMALIZUMAB
     Indication: ASTHMA
     Route: 058
     Dates: start: 20101110
  3. XOLAIR [Suspect]
     Active Substance: OMALIZUMAB
     Route: 058
     Dates: start: 20161209
  4. XOLAIR [Suspect]
     Active Substance: OMALIZUMAB
     Route: 058
     Dates: start: 2018
  5. XOLAIR [Suspect]
     Active Substance: OMALIZUMAB
     Route: 058
     Dates: start: 20130312

REACTIONS (9)
  - Dyspnoea [Unknown]
  - Lung infection [Unknown]
  - Bronchospasm [Unknown]
  - Fibrosis [Unknown]
  - Nasopharyngitis [Unknown]
  - Heart rate increased [Unknown]
  - Influenza [Unknown]
  - Moaning [Unknown]
  - Asthma [Unknown]

NARRATIVE: CASE EVENT DATE: 2012
